FAERS Safety Report 8959066 (Version 1)
Quarter: 2012Q4

REPORT INFORMATION
  Report Type: 
  Country: US (occurrence: US)
  Receive Date: 20121212
  Receipt Date: 20121212
  Transmission Date: 20130627
  Serious: Yes (Other)
  Sender: FDA-Public Use
  Company Number: US-BAYER-2012-128052

PATIENT
  Age: 43 Year
  Sex: Female
  Weight: 104 kg

DRUGS (4)
  1. GIANVI [Suspect]
  2. YAZ [Suspect]
  3. SYNTHROID [Concomitant]
     Dosage: 175 ?g, QD
     Route: 048
  4. SANCTURA [Concomitant]
     Dosage: 60 mg, qd

REACTIONS (3)
  - Axillary vein thrombosis [None]
  - Vena cava thrombosis [None]
  - Subclavian vein thrombosis [None]
